FAERS Safety Report 24282007 (Version 2)
Quarter: 2024Q3

REPORT INFORMATION
  Report Type: Spontaneous
  Country: US (occurrence: US)
  Receive Date: 20240904
  Receipt Date: 20240909
  Transmission Date: 20241017
  Serious: Yes (Other)
  Sender: PFIZER
  Company Number: US-PFIZER INC-PV202400114029

PATIENT
  Age: 71 Year
  Sex: Male

DRUGS (2)
  1. VYNDAMAX [Suspect]
     Active Substance: TAFAMIDIS
     Indication: Cardiac amyloidosis
     Dosage: UNK
  2. ELIQUIS [Suspect]
     Active Substance: APIXABAN
     Indication: Cardiac amyloidosis
     Dosage: UNK

REACTIONS (6)
  - Renal failure [Not Recovered/Not Resolved]
  - Ventricular tachycardia [Unknown]
  - Neuropathy peripheral [Recovering/Resolving]
  - Ejection fraction decreased [Unknown]
  - Spinal stenosis [Not Recovered/Not Resolved]
  - Fluid retention [Unknown]

NARRATIVE: CASE EVENT DATE: 20230101
